FAERS Safety Report 17000611 (Version 3)
Quarter: 2020Q2

REPORT INFORMATION
  Report Type: Spontaneous
  Country: US (occurrence: US)
  Receive Date: 20191106
  Receipt Date: 20200625
  Transmission Date: 20200713
  Serious: Yes (Other)
  Sender: FDA-Public Use
  Company Number: US-ASTRAZENECA-2019SF56235

PATIENT
  Age: 78 Year
  Sex: Female
  Weight: 90.7 kg

DRUGS (50)
  1. PRILOSEC [Suspect]
     Active Substance: OMEPRAZOLE MAGNESIUM
     Indication: DYSPEPSIA
     Route: 048
     Dates: start: 2001, end: 2017
  2. NEURONTIN [Concomitant]
     Active Substance: GABAPENTIN
  3. MYCOSTATIN [Concomitant]
     Active Substance: NYSTATIN
  4. LASIX [Concomitant]
     Active Substance: FUROSEMIDE
  5. TRIAMCINOLONE [Concomitant]
     Active Substance: TRIAMCINOLONE
  6. NITROFURANTOIN. [Concomitant]
     Active Substance: NITROFURANTOIN
  7. ISOPTO CARPINE [Concomitant]
     Active Substance: PILOCARPINE HYDROCHLORIDE
  8. BENZONATATE. [Concomitant]
     Active Substance: BENZONATATE
  9. PRILOSEC [Suspect]
     Active Substance: OMEPRAZOLE MAGNESIUM
     Indication: DYSPEPSIA
     Dosage: GENERIC (OMEPRAZOLE)
     Route: 065
     Dates: start: 2010, end: 2015
  10. SERAX [Concomitant]
     Active Substance: OXAZEPAM
  11. COMBIVENT [Concomitant]
     Active Substance: ALBUTEROL SULFATE\IPRATROPIUM BROMIDE
  12. PROAIR HFA [Concomitant]
     Active Substance: ALBUTEROL SULFATE
  13. LIPITOR [Concomitant]
     Active Substance: ATORVASTATIN CALCIUM
  14. PAXIL [Concomitant]
     Active Substance: PAROXETINE HYDROCHLORIDE
  15. INDERAL [Concomitant]
     Active Substance: PROPRANOLOL HYDROCHLORIDE
  16. TRAVATAN-Z [Concomitant]
  17. MUCINEX [Concomitant]
     Active Substance: GUAIFENESIN
  18. METHYLPREDNISOLONE. [Concomitant]
     Active Substance: METHYLPREDNISOLONE
  19. PROPRANOLOL [Concomitant]
     Active Substance: PROPRANOLOL HYDROCHLORIDE
  20. CEPHALEXIN. [Concomitant]
     Active Substance: CEPHALEXIN
  21. METRONIDAZOLE. [Concomitant]
     Active Substance: METRONIDAZOLE
  22. DEXILANT [Suspect]
     Active Substance: DEXLANSOPRAZOLE
     Indication: DYSPEPSIA
     Route: 065
     Dates: start: 2001, end: 2017
  23. DEXILANT [Suspect]
     Active Substance: DEXLANSOPRAZOLE
     Indication: DYSPEPSIA
     Route: 065
     Dates: start: 2015, end: 2017
  24. DESITIN [Concomitant]
     Active Substance: ZINC OXIDE
  25. ZYPREXA [Concomitant]
     Active Substance: OLANZAPINE
  26. VERELAN [Concomitant]
     Active Substance: VERAPAMIL HYDROCHLORIDE
  27. SPIRIVA [Concomitant]
     Active Substance: TIOTROPIUM BROMIDE MONOHYDRATE
  28. AMLODIPINE BESYLATE. [Concomitant]
     Active Substance: AMLODIPINE BESYLATE
  29. FLUTICASONE. [Concomitant]
     Active Substance: FLUTICASONE
  30. NABUMETONE. [Concomitant]
     Active Substance: NABUMETONE
  31. DUONEB [Concomitant]
     Active Substance: ALBUTEROL SULFATE\IPRATROPIUM BROMIDE
  32. COMMIT [Concomitant]
     Active Substance: NICOTINE
  33. DITROPAN-XL [Concomitant]
  34. LOTRIMIN [Concomitant]
     Active Substance: CLOTRIMAZOLE
  35. ONDANSETRON [Concomitant]
     Active Substance: ONDANSETRON
  36. DEXILANT [Suspect]
     Active Substance: DEXLANSOPRAZOLE
     Indication: DYSPEPSIA
     Dosage: EVERY MORNING BEFORE BREAKFAST
     Route: 065
     Dates: start: 20151030
  37. AZOPT [Concomitant]
     Active Substance: BRINZOLAMIDE
  38. KLOR-CON [Concomitant]
     Active Substance: POTASSIUM CHLORIDE
  39. LISINOPRIL. [Concomitant]
     Active Substance: LISINOPRIL
  40. PRILOSEC [Suspect]
     Active Substance: OMEPRAZOLE MAGNESIUM
     Indication: DYSPEPSIA
     Route: 048
     Dates: start: 20100527
  41. COZAAR [Concomitant]
     Active Substance: LOSARTAN POTASSIUM
  42. MYCOLOG II [Concomitant]
  43. LUMIGAN [Concomitant]
     Active Substance: BIMATOPROST
  44. CLINDAMYCIN. [Concomitant]
     Active Substance: CLINDAMYCIN
  45. SULFAMETHOXAZOLE-TMP [Concomitant]
     Active Substance: SULFAMETHOXAZOLE\TRIMETHOPRIM
  46. DOXYCYCLINE. [Concomitant]
     Active Substance: DOXYCYCLINE
  47. MACROBID [Concomitant]
     Active Substance: NITROFURANTOIN\NITROFURANTOIN MONOHYDRATE
  48. HYDROCODONE-APAP [Concomitant]
     Active Substance: ACETAMINOPHEN\HYDROCODONE
  49. LEVAQUIN [Concomitant]
     Active Substance: LEVOFLOXACIN
  50. ZIOPTAN [Concomitant]
     Active Substance: TAFLUPROST

REACTIONS (3)
  - Chronic kidney disease [Not Recovered/Not Resolved]
  - Acute kidney injury [Unknown]
  - Nephrogenic anaemia [Unknown]

NARRATIVE: CASE EVENT DATE: 20170504
